FAERS Safety Report 5074587-2 (Version None)
Quarter: 2006Q3

REPORT INFORMATION
  Report Type: 
  Country: None (occurrence: None)
  Receive Date: 20060803
  Receipt Date: 20060725
  Transmission Date: 20061208
  Serious: Yes (Hospitalization)
  Sender: FDA-Public Use
  Company Number: 430035M06USA

PATIENT
  Age: 62 Year
  Sex: Male
  Weight: 97 kg

DRUGS (3)
  1. NOVANTRONE [Suspect]
     Indication: ACUTE MYELOID LEUKAEMIA
     Dosage: 18 MG, 1 IN 1 DAYS, INTRAVENOUS
     Route: 042
     Dates: start: 20060610, end: 20060614
  2. ETOPOSIDE [Suspect]
     Indication: ACUTE MYELOID LEUKAEMIA
     Dosage: 224 MG, 1 IN 1 DAYS; INTRAVENOUS
     Route: 042
     Dates: start: 20060610, end: 20060614
  3. CYTARABINE [Suspect]
     Indication: ACUTE MYELOID LEUKAEMIA
     Dosage: 2.24 G, 1 IN 1 DAYS, INTRAVENOUS
     Route: 042
     Dates: start: 20060610, end: 20060614

REACTIONS (1)
  - FEBRILE NEUTROPENIA [None]
